FAERS Safety Report 5997078-0 (Version None)
Quarter: 2008Q4

REPORT INFORMATION
  Report Type: 
  Country: None (occurrence: None)
  Receive Date: 20081212
  Receipt Date: 20081104
  Transmission Date: 20090506
  Serious: No
  Sender: FDA-Public Use
  Company Number: US-ABBOTT-08P-163-0485378-00

PATIENT
  Sex: Male
  Weight: 122.58 kg

DRUGS (5)
  1. HUMIRA [Suspect]
     Indication: PSORIATIC ARTHROPATHY
     Route: 058
     Dates: start: 20070101
  2. SULFASALAZINE [Concomitant]
     Indication: PSORIATIC ARTHROPATHY
  3. UNKNOWN BLOOD PRESSURE MEDICATION [Concomitant]
     Indication: BLOOD PRESSURE
  4. UNKNOWN CHOLESTEROL MEDICATION [Concomitant]
     Indication: BLOOD CHOLESTEROL
  5. ACETYLSALICYLIC ACID SRT [Concomitant]
     Indication: DRUG USE FOR UNKNOWN INDICATION

REACTIONS (3)
  - ARTHRALGIA [None]
  - BACK PAIN [None]
  - JOINT EFFUSION [None]
